FAERS Safety Report 9456034 (Version 1)
Quarter: 2013Q3

REPORT INFORMATION
  Report Type: Spontaneous
  Country: DE (occurrence: DE)
  Receive Date: 20130813
  Receipt Date: 20130813
  Transmission Date: 20140515
  Serious: Yes (Death)
  Sender: FDA-Public Use
  Company Number: GXKR2013DE002702

PATIENT
  Age: 69 Year
  Sex: Male

DRUGS (4)
  1. ATORVASTATIN [Suspect]
     Indication: CORONARY ARTERY DISEASE
     Route: 048
  2. SIMVASTATIN [Interacting]
     Indication: CORONARY ARTERY DISEASE
     Route: 048
  3. TORASEMID [Concomitant]
     Route: 048
  4. ASS [Concomitant]
     Indication: CORONARY ARTERY DISEASE
     Route: 048

REACTIONS (3)
  - Renal failure acute [Fatal]
  - Rhabdomyolysis [Fatal]
  - Overdose [Fatal]
